FAERS Safety Report 4703236-5 (Version None)
Quarter: 2005Q2

REPORT INFORMATION
  Report Type: 
  Country: None (occurrence: None)
  Receive Date: 20050628
  Receipt Date: 20050609
  Transmission Date: 20051028
  Serious: Yes (Other)
  Sender: FDA-Public Use
  Company Number: DSA_26461_2005

PATIENT
  Age: 57 Year
  Sex: Female

DRUGS (3)
  1. DILTIAZEM HYDROCHLORIDE [Suspect]
     Indication: HYPERTENSION
     Dosage: 50 MG Q1HR IV
     Route: 042
     Dates: start: 20040901, end: 20040901
  2. NICARDIPINE HCL [Suspect]
     Indication: HYPERTENSION
     Dosage: 10 MG Q1HR IV
     Route: 042
     Dates: start: 20040901, end: 20040901
  3. LIDOCAINE [Suspect]
     Indication: VENTRICULAR EXTRASYSTOLES
     Dosage: 100 MG IV
     Route: 042
     Dates: start: 20040901, end: 20040901

REACTIONS (9)
  - BRADYCARDIA [None]
  - CARDIAC ARREST [None]
  - CEREBRAL HAEMORRHAGE [None]
  - DEPRESSED LEVEL OF CONSCIOUSNESS [None]
  - DIALYSIS [None]
  - HYPERTENSION [None]
  - POST PROCEDURAL COMPLICATION [None]
  - SHUNT OCCLUSION [None]
  - VENTRICULAR EXTRASYSTOLES [None]
